FAERS Safety Report 4385405-X (Version None)
Quarter: 2004Q2

REPORT INFORMATION
  Report Type: 
  Country: None (occurrence: None)
  Receive Date: 20040622
  Receipt Date: 20040609
  Transmission Date: 20050107
  Serious: Yes (Death, Other)
  Sender: FDA-Public Use
  Company Number: 2004036289

PATIENT
  Age: 74 Year
  Sex: Male
  Weight: 92.9874 kg

DRUGS (5)
  1. VIAGRA [Suspect]
     Indication: ERECTILE DYSFUNCTION
     Dosage: (50 MG, AS NEEDED), ORAL
     Route: 048
     Dates: start: 20040401, end: 20040527
  2. SOTALOL HCL [Suspect]
     Indication: ATRIAL FIBRILLATION
  3. PANTOPRAZOLE (PANTOPRAZOLE) [Concomitant]
  4. ACETYLSALICYLIC ACID SRT [Concomitant]
  5. ROFECOXIB [Concomitant]

REACTIONS (4)
  - ATRIAL FIBRILLATION [None]
  - COMA [None]
  - DRUG INTERACTION [None]
  - DYSPNOEA [None]
